FAERS Safety Report 8992128 (Version 2)
Quarter: 2013Q1

REPORT INFORMATION
  Report Type: Spontaneous
  Country: FR (occurrence: AT)
  Receive Date: 20121231
  Receipt Date: 20130201
  Transmission Date: 20140127
  Serious: Yes (Other)
  Sender: FDA-Public Use
  Company Number: AT-FRI-1000041257

PATIENT
  Age: 62 Year
  Sex: Female
  Weight: 80 kg

DRUGS (3)
  1. MILNACIPRAN [Suspect]
     Indication: DEPRESSION
     Dates: start: 20121003, end: 201211
  2. MILNACIPRAN [Suspect]
     Indication: DEPRESSION
     Dosage: 100 MG
     Route: 048
     Dates: start: 201211, end: 20121121
  3. MAGNOSOLV [Concomitant]

REACTIONS (4)
  - Nervousness [Not Recovered/Not Resolved]
  - Restlessness [Not Recovered/Not Resolved]
  - Hypertension [Recovering/Resolving]
  - Malaise [Not Recovered/Not Resolved]
